FAERS Safety Report 26125927 (Version 1)
Quarter: 2025Q4

REPORT INFORMATION
  Report Type: Spontaneous
  Country: US (occurrence: None)
  Receive Date: 20251204
  Receipt Date: 20251204
  Transmission Date: 20260117
  Serious: Yes (Other)
  Sender: FDA-CTU
  Company Number: None

PATIENT
  Age: 11 Year
  Sex: Male

DRUGS (1)
  1. PALFORZIA [Suspect]
     Active Substance: PEANUT
     Dosage: 300 MG DAILY ORAL
     Route: 048
     Dates: start: 20240724, end: 20250908

REACTIONS (2)
  - Abdominal pain [None]
  - Eosinophilic oesophagitis [None]
